FAERS Safety Report 4720906-3 (Version None)
Quarter: 2005Q3

REPORT INFORMATION
  Report Type: 
  Country: None (occurrence: None)
  Receive Date: 20050720
  Receipt Date: 20050713
  Transmission Date: 20060218
  Serious: Yes (Hospitalization)
  Sender: FDA-Public Use
  Company Number: 200510465BFR

PATIENT
  Age: 58 Year
  Sex: Male

DRUGS (4)
  1. IZILOX (MOXIFLOXACIN HYDROCHLORIDE) [Suspect]
     Indication: ATYPICAL MYCOBACTERIAL INFECTION
     Dosage: 400 MG, TOTAL DAILY, ORAL
     Route: 048
     Dates: start: 20041221, end: 20050117
  2. DEXAMBUTOL (ETHAMBUTOL DIHYDROCHLORIDE) [Suspect]
     Indication: ATYPICAL MYCOBACTERIAL INFECTION
     Dosage: ORAL
     Route: 048
     Dates: start: 20041221, end: 20050117
  3. CLARITHROMYCIN [Suspect]
     Indication: ATYPICAL MYCOBACTERIAL INFECTION
  4. ANSATIPINE (RIFABUTIN) [Suspect]
     Indication: ATYPICAL MYCOBACTERIAL INFECTION

REACTIONS (5)
  - LABORATORY TEST ABNORMAL [None]
  - MYOCARDIAL INFARCTION [None]
  - NEUTROPENIA [None]
  - RECTAL HAEMORRHAGE [None]
  - THROMBOCYTOPENIA [None]
